FAERS Safety Report 13456188 (Version 1)
Quarter: 2017Q2

REPORT INFORMATION
  Report Type: Spontaneous
  Country: US (occurrence: US)
  Receive Date: 20170419
  Receipt Date: 20170419
  Transmission Date: 20170830
  Serious: No
  Sender: FDA-Public Use
  Company Number: None

PATIENT
  Age: 34 Year
  Sex: Female
  Weight: 112.49 kg

DRUGS (10)
  1. TRAZODONE [Concomitant]
     Active Substance: TRAZODONE HYDROCHLORIDE
  2. CELEXA [Concomitant]
     Active Substance: CITALOPRAM HYDROBROMIDE
  3. MULTIVITAMIN [Concomitant]
     Active Substance: VITAMINS
  4. POLYETHYLENE GLYCOL POWDER [Concomitant]
  5. IBUPROFEN. [Concomitant]
     Active Substance: IBUPROFEN
  6. WOMANS MULTIVITAMIN [Concomitant]
  7. TOPAMAX [Concomitant]
     Active Substance: TOPIRAMATE
  8. LORATADINE. [Concomitant]
     Active Substance: LORATADINE
  9. MIRENA [Suspect]
     Active Substance: LEVONORGESTREL
     Indication: CONTRACEPTION
     Dosage: INSERTED
     Dates: start: 20140312
  10. VITAMIN D3 [Concomitant]
     Active Substance: CHOLECALCIFEROL

REACTIONS (11)
  - Breast cyst [None]
  - Dysmenorrhoea [None]
  - Weight increased [None]
  - Breast discharge [None]
  - Breast swelling [None]
  - Back pain [None]
  - Nausea [None]
  - Headache [None]
  - Peripheral swelling [None]
  - Breast pain [None]
  - Ovarian cyst [None]
